FAERS Safety Report 6760194-X (Version None)
Quarter: 2010Q2

REPORT INFORMATION
  Report Type: 
  Country: None (occurrence: None)
  Receive Date: 20100608
  Receipt Date: 19990518
  Transmission Date: 20101027
  Serious: No
  Sender: FDA-Public Use
  Company Number: 1999SUS0503

PATIENT
  Age: 19 Year
  Sex: Female

DRUGS (3)
  1. SUSTIVA [Suspect]
     Indication: HIV INFECTION
     Dosage: 400 MG AES#DOSE_FREQUENCY: BID
     Route: 048
     Dates: start: 19990504
  2. AZT [Concomitant]
  3. AS REPORTED [Concomitant]

REACTIONS (6)
  - ABDOMINAL PAIN UPPER [None]
  - DRUG ADMINISTRATION ERROR [None]
  - PREGNANCY [None]
  - PRURITUS [None]
  - RASH [None]
  - URINE OUTPUT INCREASED [None]
